FAERS Safety Report 9697338 (Version 1)
Quarter: 2013Q4

REPORT INFORMATION
  Report Type: Spontaneous
  Country: US (occurrence: None)
  Receive Date: 20131119
  Receipt Date: 20131119
  Transmission Date: 20140711
  Serious: No
  Sender: FDA-Public Use
  Company Number: None

PATIENT
  Age: 73 Year
  Sex: Female

DRUGS (1)
  1. XERALTO [Suspect]

REACTIONS (11)
  - Transient ischaemic attack [None]
  - Oral mucosal blistering [None]
  - Lip blister [None]
  - Rash generalised [None]
  - Blood pressure increased [None]
  - Skin exfoliation [None]
  - Euphoric mood [None]
  - Mental disorder [None]
  - Judgement impaired [None]
  - Insomnia [None]
  - Bipolar disorder [None]
